FAERS Safety Report 15749661 (Version 1)
Quarter: 2018Q4

REPORT INFORMATION
  Report Type: Spontaneous
  Country: US (occurrence: US)
  Receive Date: 20181220
  Receipt Date: 20181220
  Transmission Date: 20190205
  Serious: Yes (Hospitalization)
  Sender: FDA-Public Use
  Company Number: None

PATIENT
  Sex: Female

DRUGS (11)
  1. ADCIRCA [Suspect]
     Active Substance: TADALAFIL
     Indication: PULMONARY ARTERIAL HYPERTENSION
     Route: 048
     Dates: start: 20180330
  2. LEVOTHYROXINE. [Concomitant]
     Active Substance: LEVOTHYROXINE
  3. OMEPRAZOLE. [Concomitant]
     Active Substance: OMEPRAZOLE
  4. GABAPENTIN. [Concomitant]
     Active Substance: GABAPENTIN
  5. SPIRINOLACTONE [Concomitant]
     Active Substance: SPIRONOLACTONE
  6. METOLAZONE. [Concomitant]
     Active Substance: METOLAZONE
  7. POTASSIUM CL [Concomitant]
     Active Substance: POTASSIUM CHLORIDE
  8. BUMETANIDE. [Concomitant]
     Active Substance: BUMETANIDE
  9. CARAFATE [Concomitant]
     Active Substance: SUCRALFATE
  10. LEVOFLOXACIN. [Concomitant]
     Active Substance: LEVOFLOXACIN
  11. MAG-OX [Concomitant]
     Active Substance: MAGNESIUM OXIDE

REACTIONS (4)
  - Bacterial infection [None]
  - Diarrhoea [None]
  - Calcinosis [None]
  - Wound [None]
